FAERS Safety Report 8119452-9 (Version None)
Quarter: 2011Q4

REPORT INFORMATION
  Report Type: 
  Country: None (occurrence: None)
  Receive Date: 20111227
  Receipt Date: 20110926
  Transmission Date: 20120403
  Serious: No
  Sender: FDA-Public Use
  Company Number: PHEH2011US05414

PATIENT
  Age: 48 Year
  Sex: Female
  Weight: 86.2 kg

DRUGS (10)
  1. GILENYA [Suspect]
     Dosage: 1 DF, QD, ORAL
     Route: 048
  2. MULTI-VITAMINS [Concomitant]
  3. AMITRIPTYLINE HCL [Concomitant]
  4. LIDOCAINE (LIDOCAINE) CREAM, 3 % [Concomitant]
  5. CYMBALTA [Concomitant]
  6. TYLENOL PM, EXTRA STRENGTH (DIPHENHYDRAMINE, PARACETAMOL) [Concomitant]
  7. NEURONTIN [Concomitant]
  8. LAMOTRIGINE [Concomitant]
  9. OMEGA 3 (FISH OIL) CAPSULE [Concomitant]
  10. IMITREX (SUMATRIPTAN SUCCINATE) TABLET [Concomitant]

REACTIONS (1)
  - PAIN IN EXTREMITY [None]
